FAERS Safety Report 4548707-X (Version None)
Quarter: 2005Q1

REPORT INFORMATION
  Report Type: 
  Country: None (occurrence: None)
  Receive Date: 20050106
  Receipt Date: 20041227
  Transmission Date: 20050727
  Serious: Yes (Other)
  Sender: FDA-Public Use
  Company Number: 2004118909

PATIENT
  Sex: Female
  Weight: 83.4619 kg

DRUGS (1)
  1. BENADRYL [Suspect]
     Indication: ARTHROPOD STING
     Dosage: UNSPECIFIED ONCE, ORAL
     Route: 048
     Dates: start: 19840101, end: 19840101

REACTIONS (1)
  - HEART RATE INCREASED [None]
